FAERS Safety Report 16014370 (Version 9)
Quarter: 2020Q3

REPORT INFORMATION
  Report Type: Spontaneous
  Country: GB (occurrence: GB)
  Receive Date: 20190227
  Receipt Date: 20200812
  Transmission Date: 20201102
  Serious: Yes (Other)
  Sender: FDA-Public Use
  Company Number: PHHY2019GB041230

PATIENT
  Age: 78 Year
  Sex: Female

DRUGS (59)
  1. PERTUZUMAB. [Suspect]
     Active Substance: PERTUZUMAB
     Dosage: MAINTAINENCE DOSE
     Route: 042
     Dates: start: 20160225, end: 20180704
  2. DEXAMETHASONE. [Concomitant]
     Active Substance: DEXAMETHASONE
     Route: 048
     Dates: start: 20160225
  3. SITAGLIPTIN [Concomitant]
     Active Substance: SITAGLIPTIN
     Indication: PRODUCT USED FOR UNKNOWN INDICATION
     Dosage: 100 MG, QD
     Route: 048
  4. TRAMADOL HYDROCHLORIDE. [Concomitant]
     Active Substance: TRAMADOL HYDROCHLORIDE
     Indication: PRODUCT USED FOR UNKNOWN INDICATION
     Dosage: 200 MG, QD
     Route: 048
     Dates: start: 20160217
  5. METOCLOPRAMIDE. [Concomitant]
     Active Substance: METOCLOPRAMIDE
     Indication: PRODUCT USED FOR UNKNOWN INDICATION
     Dosage: 30 MG, QD
     Route: 048
  6. TINZAPARIN [Concomitant]
     Active Substance: TINZAPARIN
     Indication: PRODUCT USED FOR UNKNOWN INDICATION
     Dosage: 11000 UNIT
     Route: 058
     Dates: start: 20180915, end: 20181128
  7. TAMOXIFEN [Suspect]
     Active Substance: TAMOXIFEN
     Dosage: 20 MG, QD
     Route: 048
     Dates: start: 20180915
  8. TRASTUZUMAB EMTANSINE [Suspect]
     Active Substance: ADO-TRASTUZUMAB EMTANSINE
     Indication: BREAST CANCER METASTATIC
     Dosage: 220 MG, Q3W
     Route: 042
     Dates: start: 20180928, end: 20190315
  9. TRASTUZUMAB. [Suspect]
     Active Substance: TRASTUZUMAB
     Dosage: MAINTAINENCE DOSE.
     Route: 042
     Dates: start: 20160225, end: 20160617
  10. CHLORHEXIDINE GLUCONATE. [Concomitant]
     Active Substance: CHLORHEXIDINE GLUCONATE
     Indication: PRODUCT USED FOR UNKNOWN INDICATION
     Dosage: 0.8 %, QD
     Route: 048
     Dates: start: 20160225
  11. CHLORHEXIDINE GLUCONATE. [Concomitant]
     Active Substance: CHLORHEXIDINE GLUCONATE
     Dosage: MOUTH WASH
     Route: 048
     Dates: start: 20160225
  12. DOCUSATE SODIUM. [Concomitant]
     Active Substance: DOCUSATE SODIUM
     Dosage: 200 MG
     Route: 048
  13. MACROGOL [Concomitant]
     Active Substance: POLYETHYLENE GLYCOLS
     Dosage: SACHET
     Route: 065
  14. METFORMIN [Concomitant]
     Active Substance: METFORMIN HYDROCHLORIDE
     Dosage: 1000 MG
     Route: 065
  15. BUDESONIDE. [Concomitant]
     Active Substance: BUDESONIDE
     Indication: PRODUCT USED FOR UNKNOWN INDICATION
     Dosage: 9 MG, QD
     Route: 048
     Dates: start: 20190403, end: 20190523
  16. LOPERAMIDE [Concomitant]
     Active Substance: LOPERAMIDE
     Indication: PRODUCT USED FOR UNKNOWN INDICATION
     Dosage: 2 MG, PRN (AS NEEDED)
     Route: 048
  17. AMLODIPINE [Concomitant]
     Active Substance: AMLODIPINE BESYLATE
     Route: 048
  18. ZOLEDRONIC ACID [Concomitant]
     Active Substance: ZOLEDRONIC ACID
     Dosage: 3 MG
     Route: 042
     Dates: start: 20170628, end: 20171220
  19. ZOLEDRONIC ACID [Concomitant]
     Active Substance: ZOLEDRONIC ACID
     Dosage: 3.5 MG
     Route: 042
     Dates: start: 20190408, end: 20190408
  20. GLICLAZIDE [Concomitant]
     Active Substance: GLICLAZIDE
     Dosage: 80 MG, QD
     Route: 048
     Dates: start: 201809, end: 20190424
  21. DEXAMETHASONE. [Concomitant]
     Active Substance: DEXAMETHASONE
     Indication: PRODUCT USED FOR UNKNOWN INDICATION
     Dosage: 16 MG, QD
     Route: 048
     Dates: start: 20160225
  22. CANDESARTAN. [Concomitant]
     Active Substance: CANDESARTAN
     Indication: PRODUCT USED FOR UNKNOWN INDICATION
     Dosage: 8 MG, QD
     Route: 048
  23. TRAMADOL HYDROCHLORIDE. [Concomitant]
     Active Substance: TRAMADOL HYDROCHLORIDE
     Dosage: 50 MG
     Route: 048
     Dates: start: 20160217
  24. ATORVASTATIN [Concomitant]
     Active Substance: ATORVASTATIN
     Indication: PRODUCT USED FOR UNKNOWN INDICATION
     Dosage: 20 MG, QD
     Route: 048
  25. ZOLEDRONIC ACID [Concomitant]
     Active Substance: ZOLEDRONIC ACID
     Dosage: EVERY 3?4WEEKS FOR 9 CYCLES THEN 3 MONTS
     Route: 042
     Dates: start: 20160414, end: 20170112
  26. GLICLAZIDE [Concomitant]
     Active Substance: GLICLAZIDE
     Indication: PRODUCT USED FOR UNKNOWN INDICATION
     Dosage: 40 MG, QD
     Route: 048
     Dates: start: 20190620, end: 20190705
  27. LETROZOLE. [Suspect]
     Active Substance: LETROZOLE
     Dosage: 2.5 MG, UNK
     Route: 048
     Dates: start: 20180704
  28. TRASTUZUMAB. [Suspect]
     Active Substance: TRASTUZUMAB
     Indication: BREAST CANCER METASTATIC
     Dosage: LOADING DOSE
     Route: 041
     Dates: start: 20160225, end: 20160225
  29. ZOPICLONE [Concomitant]
     Active Substance: ZOPICLONE
     Indication: PRODUCT USED FOR UNKNOWN INDICATION
     Dosage: 3.75 MG, QD
     Route: 048
     Dates: start: 20160217
  30. METFORMIN [Concomitant]
     Active Substance: METFORMIN HYDROCHLORIDE
     Indication: PRODUCT USED FOR UNKNOWN INDICATION
     Dosage: 2000 MG, QD
     Route: 065
  31. DOMPERIDONE [Concomitant]
     Active Substance: DOMPERIDONE
     Indication: PRODUCT USED FOR UNKNOWN INDICATION
     Dosage: 30 MG, QD
     Route: 048
     Dates: start: 20160225
  32. DOMPERIDONE [Concomitant]
     Active Substance: DOMPERIDONE
     Dosage: 10 MG
     Route: 048
     Dates: start: 20160225
  33. DENOSUMAB [Concomitant]
     Active Substance: DENOSUMAB
     Indication: PRODUCT USED FOR UNKNOWN INDICATION
     Dosage: EVERY 3?4 WEEKS
     Route: 058
     Dates: start: 20180110, end: 20190426
  34. CINACALCET. [Concomitant]
     Active Substance: CINACALCET
     Indication: HYPERCALCAEMIA OF MALIGNANCY
     Dosage: 30 MG, QD
     Route: 048
     Dates: start: 20190413
  35. AMLODIPINE [Concomitant]
     Active Substance: AMLODIPINE BESYLATE
     Indication: HYPERTENSION
     Dosage: 5 MG, QD
     Route: 048
     Dates: start: 20180915, end: 20190529
  36. ZOLEDRONIC ACID [Concomitant]
     Active Substance: ZOLEDRONIC ACID
     Indication: PRODUCT USED FOR UNKNOWN INDICATION
     Dosage: 3.3 MG, QMO
     Route: 042
     Dates: start: 20160226
  37. ZOLEDRONIC ACID [Concomitant]
     Active Substance: ZOLEDRONIC ACID
     Dosage: 3.3 MG
     Route: 042
     Dates: start: 20170209, end: 20170323
  38. ACTRAPID [Concomitant]
     Active Substance: INSULIN HUMAN
     Indication: PRODUCT USED FOR UNKNOWN INDICATION
     Route: 058
     Dates: start: 20190620, end: 20190705
  39. LETROZOLE. [Suspect]
     Active Substance: LETROZOLE
     Indication: PRODUCT USED FOR UNKNOWN INDICATION
     Dosage: 2.5 MG, QD
     Route: 048
     Dates: start: 20160413, end: 20180704
  40. TAMOXIFEN [Suspect]
     Active Substance: TAMOXIFEN
     Indication: BREAST CANCER METASTATIC
     Dosage: 20 MG, QD
     Route: 048
     Dates: start: 20180704, end: 20180915
  41. PERTUZUMAB. [Suspect]
     Active Substance: PERTUZUMAB
     Indication: BREAST CANCER METASTATIC
     Dosage: LOADING DOSE
     Route: 042
     Dates: start: 20160225
  42. RIVAROXABAN [Concomitant]
     Active Substance: RIVAROXABAN
     Indication: PRODUCT USED FOR UNKNOWN INDICATION
     Dosage: 1 OT, QD
     Route: 048
     Dates: start: 20181128
  43. DOCUSATE SODIUM. [Concomitant]
     Active Substance: DOCUSATE SODIUM
     Indication: PRODUCT USED FOR UNKNOWN INDICATION
     Dosage: 400 MG, QD
     Route: 048
  44. PHOSPHATE SANDOZ [Concomitant]
     Active Substance: SODIUM PHOSPHATE, MONOBASIC, ANHYDROUS
     Indication: BLOOD PHOSPHORUS DECREASED
     Dosage: UNK
     Route: 048
     Dates: start: 20190423, end: 20190425
  45. POTASSIUM CHLORIDE. [Concomitant]
     Active Substance: POTASSIUM CHLORIDE
     Indication: BLOOD POTASSIUM DECREASED
     Dosage: MMOL/L
     Route: 042
     Dates: start: 20190611, end: 20190620
  46. ZOLEDRONIC ACID [Concomitant]
     Active Substance: ZOLEDRONIC ACID
     Dosage: 3 MG
     Route: 042
     Dates: start: 20190510, end: 20190529
  47. GLICLAZIDE [Concomitant]
     Active Substance: GLICLAZIDE
     Dosage: 80 MG, QD
     Route: 048
     Dates: start: 20190425, end: 201905
  48. NERATINIB [Suspect]
     Active Substance: NERATINIB
     Indication: PRODUCT USED FOR UNKNOWN INDICATION
     Dosage: 240 MG, QD
     Route: 048
     Dates: start: 20190403
  49. PERTUZUMAB. [Suspect]
     Active Substance: PERTUZUMAB
     Dosage: 840 MG, TIW (LOADING DOSE)
     Route: 042
     Dates: start: 20180704
  50. MACROGOL [Concomitant]
     Active Substance: POLYETHYLENE GLYCOLS
     Indication: PRODUCT USED FOR UNKNOWN INDICATION
     Dosage: 2 DF, QD (SACHET)
     Route: 065
  51. POTASSIUM BICARBONATE;SODIUM BICARBONATE;SODI [Concomitant]
     Indication: HYPOPHOSPHATAEMIA
     Dosage: 2 DF
     Route: 048
     Dates: start: 20190611, end: 20190614
  52. DOCETAXEL. [Suspect]
     Active Substance: DOCETAXEL
     Indication: BREAST CANCER METASTATIC
     Dosage: 65 MG, Q3W
     Route: 042
     Dates: start: 20160226, end: 20160226
  53. TRASTUZUMAB. [Suspect]
     Active Substance: TRASTUZUMAB
     Dosage: 350 MG, Q3W
     Route: 042
     Dates: start: 20160707
  54. METOCLOPRAMIDE. [Concomitant]
     Active Substance: METOCLOPRAMIDE
     Dosage: 10 MG
     Route: 048
  55. OCTASA [Concomitant]
     Active Substance: MESALAMINE
     Indication: GASTROINTESTINAL MOTILITY DISORDER
     Dosage: 800 MG, QD
     Route: 048
     Dates: start: 20170523, end: 2017
  56. SANDO K [Concomitant]
     Indication: PRODUCT USED FOR UNKNOWN INDICATION
     Dosage: 2 OT, QD
     Route: 048
     Dates: start: 20160322, end: 20160326
  57. DIPROBASE [Concomitant]
     Active Substance: CHLOROCRESOL
     Indication: PRODUCT USED FOR UNKNOWN INDICATION
     Dosage: UNK
     Route: 065
  58. LINAGLIPTIN [Concomitant]
     Active Substance: LINAGLIPTIN
     Indication: PRODUCT USED FOR UNKNOWN INDICATION
     Dosage: 5 MG, QD
     Route: 048
     Dates: start: 201809, end: 201905
  59. BENZYDAMINE HYDROCHLORIDE [Concomitant]
     Active Substance: BENZYDAMINE HYDROCHLORIDE
     Indication: GLOSSODYNIA
     Dosage: UNK
     Route: 065

REACTIONS (16)
  - Acute kidney injury [Recovered/Resolved]
  - Diarrhoea [Recovered/Resolved]
  - Rectal haemorrhage [Not Recovered/Not Resolved]
  - Diarrhoea [Recovered/Resolved]
  - Weight decreased [Recovered/Resolved]
  - Rash pruritic [Recovered/Resolved]
  - Hypomagnesaemia [Recovered/Resolved]
  - Diarrhoea [Recovered/Resolved]
  - Decreased appetite [Not Recovered/Not Resolved]
  - Weight decreased [Not Recovered/Not Resolved]
  - Urinary tract infection [Recovered/Resolved]
  - Cholelithiasis [Not Recovered/Not Resolved]
  - Vomiting [Recovered/Resolved]
  - Diarrhoea [Recovered/Resolved]
  - Back pain [Not Recovered/Not Resolved]
  - Diarrhoea [Recovered/Resolved]

NARRATIVE: CASE EVENT DATE: 20160323
